FAERS Safety Report 19098221 (Version 3)
Quarter: 2021Q3

REPORT INFORMATION
  Report Type: Report from Study
  Country: US (occurrence: US)
  Receive Date: 20210406
  Receipt Date: 20210705
  Transmission Date: 20211014
  Serious: No
  Sender: FDA-Public Use
  Company Number: NVSC2021US074613

PATIENT
  Age: 44 Year
  Sex: Female

DRUGS (1)
  1. COSENTYX [Suspect]
     Active Substance: SECUKINUMAB
     Indication: PSORIATIC ARTHROPATHY
     Dosage: 300 MG/KG, QMO
     Route: 058
     Dates: start: 202102, end: 202103

REACTIONS (7)
  - Dyspnoea [Unknown]
  - Sinus disorder [Unknown]
  - Fatigue [Unknown]
  - Rhinorrhoea [Unknown]
  - Ear discomfort [Unknown]
  - Dry eye [Unknown]
  - Nasal congestion [Unknown]

NARRATIVE: CASE EVENT DATE: 202102
